FAERS Safety Report 9537481 (Version 3)
Quarter: 2013Q4

REPORT INFORMATION
  Report Type: Spontaneous
  Country: JP (occurrence: JP)
  Receive Date: 20130919
  Receipt Date: 20131008
  Transmission Date: 20140711
  Serious: Yes (Hospitalization)
  Sender: FDA-Public Use
  Company Number: JP-GLAXOSMITHKLINE-B0923867A

PATIENT
  Age: 72 Year
  Sex: Female
  Weight: 65 kg

DRUGS (4)
  1. VALTREX [Suspect]
     Indication: HERPES ZOSTER
     Dosage: 1000MG THREE TIMES PER DAY
     Route: 048
     Dates: start: 20130813, end: 20130915
  2. LOXONIN [Concomitant]
     Dosage: 60MG THREE TIMES PER DAY
     Route: 048
     Dates: start: 20130813, end: 20130915
  3. MUCOSTA [Concomitant]
     Dosage: 100MG THREE TIMES PER DAY
     Route: 048
     Dates: start: 20130813, end: 20130915
  4. ANTIHYPERTENSIVES [Concomitant]
     Route: 065

REACTIONS (4)
  - Renal impairment [Recovered/Resolved]
  - Dysarthria [Recovered/Resolved]
  - Dizziness [Unknown]
  - Nervous system disorder [Unknown]
